FAERS Safety Report 8619654 (Version 2)
Quarter: 2012Q4

REPORT INFORMATION
  Report Type: Report from Study
  Country: US (occurrence: US)
  Receive Date: 20120618
  Receipt Date: 20120928
  Transmission Date: 20130627
  Serious: Yes (Hospitalization)
  Sender: FDA-Public Use
  Company Number: US-ROCHE-1077695

PATIENT
  Age: 63 Year
  Sex: Female
  Weight: 68.13 kg

DRUGS (3)
  1. AVASTIN [Suspect]
     Indication: FALLOPIAN TUBE CANCER
     Dosage: last administered dose: 30/Mar/2012, cycle 2
     Route: 042
     Dates: start: 20110609
  2. CARBOPLATIN [Suspect]
     Indication: FALLOPIAN TUBE CANCER
     Dosage: AUC 6, on day1 (cycle 1 -6)
     Route: 042
     Dates: start: 20110609
  3. PACLITAXEL [Suspect]
     Indication: FALLOPIAN TUBE CANCER
     Dosage: (cycle 1 -6)
     Route: 042
     Dates: start: 20110609

REACTIONS (1)
  - Small intestinal obstruction [Not Recovered/Not Resolved]
